FAERS Safety Report 20160756 (Version 1)
Quarter: 2021Q4

REPORT INFORMATION
  Report Type: Report from Study
  Country: US (occurrence: US)
  Receive Date: 20211208
  Receipt Date: 20211208
  Transmission Date: 20220303
  Serious: Yes (Other)
  Sender: FDA-Public Use
  Company Number: US-BoehringerIngelheim-2021-BI-107856

PATIENT
  Age: 83 Year
  Sex: Female
  Weight: 55.33 kg

DRUGS (3)
  1. OFEV [Suspect]
     Active Substance: NINTEDANIB
     Indication: Idiopathic pulmonary fibrosis
     Route: 048
     Dates: start: 20210512, end: 20210827
  2. OFEV [Suspect]
     Active Substance: NINTEDANIB
     Dosage: ONCE A DAY
     Route: 048
     Dates: start: 202105
  3. LOPERAMIDE [Suspect]
     Active Substance: LOPERAMIDE
     Indication: Product used for unknown indication

REACTIONS (24)
  - Hip fracture [Recovered/Resolved]
  - Immunodeficiency [Unknown]
  - Pollakiuria [Unknown]
  - Fall [Recovered/Resolved]
  - Diarrhoea [Recovered/Resolved]
  - Asthenia [Recovered/Resolved]
  - Headache [Unknown]
  - Patella fracture [Recovered/Resolved]
  - Upper limb fracture [Recovered/Resolved]
  - Abdominal pain [Recovered/Resolved]
  - Abdominal pain upper [Unknown]
  - Tachypnoea [Unknown]
  - Dizziness [Recovered/Resolved]
  - Palpitations [Recovered/Resolved]
  - Panic attack [Unknown]
  - Atrophy [Not Recovered/Not Resolved]
  - Vomiting [Recovered/Resolved]
  - Cough [Unknown]
  - Hunger [Unknown]
  - Dry mouth [Recovered/Resolved]
  - Gastric disorder [Recovered/Resolved]
  - Somnolence [Recovered/Resolved]
  - Pruritus [Not Recovered/Not Resolved]
  - Hyperphagia [Not Recovered/Not Resolved]

NARRATIVE: CASE EVENT DATE: 20210501
